FAERS Safety Report 6653690-7 (Version None)
Quarter: 2010Q1

REPORT INFORMATION
  Report Type: 
  Country: None (occurrence: None)
  Receive Date: 20100326
  Receipt Date: 20100322
  Transmission Date: 20100710
  Serious: Yes (Death, Life-Threatening, Hospitalization)
  Sender: FDA-Public Use
  Company Number: HU-BRISTOL-MYERS SQUIBB COMPANY-14341978

PATIENT
  Age: 79 Year
  Sex: Male

DRUGS (13)
  1. APIXABAN [Suspect]
     Indication: THROMBOSIS PROPHYLAXIS
     Route: 048
     Dates: start: 20080813, end: 20080916
  2. COUMADIN [Suspect]
     Indication: THROMBOSIS PROPHYLAXIS
     Dosage: INTERRUPTED DATE: 15-SEP-08
     Route: 048
     Dates: start: 20080813, end: 20080914
  3. PLACEBO [Suspect]
     Indication: THROMBOSIS PROPHYLAXIS
     Dosage: APIXABAN ARM:13AUG08-16SEP08;WARFARIN ARM:13AUG08-14SEP08.
     Route: 048
     Dates: start: 20080813, end: 20080901
  4. METOPROLOL [Concomitant]
     Dosage: 50 MP
     Route: 048
     Dates: start: 20080616, end: 20080916
  5. FOSINOPRIL SODIUM [Concomitant]
     Dates: start: 20080616, end: 20080916
  6. HYDROCHLOROTHIAZIDE [Concomitant]
     Dates: start: 20080616, end: 20080916
  7. RANITIDINE [Concomitant]
     Dates: start: 20080609, end: 20080916
  8. SERENOA REPENS [Concomitant]
     Dates: start: 20080609, end: 20080916
  9. CIPROFLOXACIN [Concomitant]
     Route: 048
     Dates: start: 20080908, end: 20080912
  10. DICLOFENAC [Concomitant]
     Route: 048
     Dates: start: 20080908, end: 20080912
  11. DUOPRIL [Concomitant]
     Route: 048
     Dates: start: 20080616, end: 20080922
  12. ASPIRIN [Concomitant]
     Dates: start: 20070701, end: 20080916
  13. PROSTAMOL [Concomitant]
     Route: 048
     Dates: start: 20080609

REACTIONS (4)
  - BRONCHOPNEUMONIA [None]
  - CARDIOPULMONARY FAILURE [None]
  - PULMONARY HAEMORRHAGE [None]
  - UPPER GASTROINTESTINAL HAEMORRHAGE [None]
